FAERS Safety Report 21032443 (Version 2)
Quarter: 2022Q3

REPORT INFORMATION
  Report Type: Spontaneous
  Country: US (occurrence: US)
  Receive Date: 20220701
  Receipt Date: 20220701
  Transmission Date: 20221027
  Serious: No
  Sender: FDA-Public Use
  Company Number: US-AMGEN-USASP2022105404

PATIENT
  Age: 66 Year
  Sex: Male
  Weight: 130 kg

DRUGS (1)
  1. NEULASTA [Suspect]
     Active Substance: PEGFILGRASTIM
     Indication: Neutropenia
     Dosage: UNK
     Route: 065

REACTIONS (4)
  - Device malfunction [Unknown]
  - Device physical property issue [Unknown]
  - Application site pain [Unknown]
  - Application site bruise [Unknown]

NARRATIVE: CASE EVENT DATE: 20220603
